FAERS Safety Report 9268327 (Version 2)
Quarter: 2014Q1

REPORT INFORMATION
  Report Type: Report from Study
  Country: US (occurrence: US)
  Receive Date: 20130502
  Receipt Date: 20140206
  Transmission Date: 20141002
  Serious: Yes (Hospitalization, Other)
  Sender: FDA-Public Use
  Company Number: US-ALEXION-A201202013

PATIENT
  Sex: Female

DRUGS (1)
  1. SOLIRIS [Suspect]
     Indication: HAEMOLYTIC URAEMIC SYNDROME
     Dosage: UNK
     Route: 042
     Dates: start: 20120905

REACTIONS (11)
  - Unevaluable event [Unknown]
  - Plasmapheresis [Unknown]
  - Packed red blood cell transfusion [Unknown]
  - Platelet transfusion [Unknown]
  - Blood creatinine increased [Unknown]
  - Hypertension [Unknown]
  - Platelet count decreased [Unknown]
  - Oedema [Unknown]
  - Weight increased [Unknown]
  - Headache [Unknown]
  - Fatigue [Unknown]
